FAERS Safety Report 6196983-2 (Version None)
Quarter: 2009Q2

REPORT INFORMATION
  Report Type: 
  Country: None (occurrence: None)
  Receive Date: 20090520
  Receipt Date: 20090514
  Transmission Date: 20091009
  Serious: Yes (Other)
  Sender: FDA-Public Use
  Company Number: PHEH2009US04884

PATIENT
  Age: 65 Year
  Sex: Female

DRUGS (3)
  1. DIOVAN HCT [Suspect]
     Dosage: 320/25MG, UNK
     Route: 048
  2. SIMVASTATIN [Concomitant]
  3. TRAZODONE HCL [Concomitant]

REACTIONS (1)
  - HYPERTHYROIDISM [None]
